FAERS Safety Report 18449554 (Version 2)
Quarter: 2021Q1

REPORT INFORMATION
  Report Type: Other
  Country: CA (occurrence: CA)
  Receive Date: 20201102
  Receipt Date: 20210217
  Transmission Date: 20210419
  Serious: Yes (Other)
  Sender: FDA-Public Use
  Company Number: CA-CELLTRION INC.-2020CA029816

PATIENT

DRUGS (15)
  1. SYNTHROID [Concomitant]
     Active Substance: LEVOTHYROXINE SODIUM
  2. BENADRYL [Concomitant]
     Active Substance: DIPHENHYDRAMINE HYDROCHLORIDE
  3. CYCLOPHOSPHAMIDE. [Concomitant]
     Active Substance: CYCLOPHOSPHAMIDE
  4. PROLIA [Concomitant]
     Active Substance: DENOSUMAB
  5. RITUXIMAB (UNKNOWN) [Suspect]
     Active Substance: RITUXIMAB
     Indication: VASCULITIS
     Dosage: 500 MILLIGRAM
     Route: 042
  6. DEXILANT [Concomitant]
     Active Substance: DEXLANSOPRAZOLE
  7. RITUXIMAB (UNKNOWN) [Suspect]
     Active Substance: RITUXIMAB
     Indication: MICROSCOPIC POLYANGIITIS
     Dosage: 1000 MILLIGRAM, 1 EVERY 2 WEEKS
     Route: 042
  8. CALCIUM [Concomitant]
     Active Substance: CALCIUM
  9. GRAVOL [Concomitant]
     Active Substance: DIMENHYDRINATE
  10. METHYLPREDNISOLONE SODIUM SUCCINATE. [Concomitant]
     Active Substance: METHYLPREDNISOLONE SODIUM SUCCINATE
  11. ERGOCALCIFEROL. [Concomitant]
     Active Substance: ERGOCALCIFEROL
  12. RISEDRONATE SODIUM. [Concomitant]
     Active Substance: RISEDRONATE SODIUM
  13. SENOKOT [Concomitant]
     Active Substance: SENNOSIDES
  14. PREDNISONE. [Concomitant]
     Active Substance: PREDNISONE
  15. TYLENOL [Concomitant]
     Active Substance: ACETAMINOPHEN

REACTIONS (7)
  - Blood pressure diastolic abnormal [Recovered/Resolved]
  - Heart rate decreased [Recovered/Resolved]
  - Infusion related reaction [Recovered/Resolved]
  - Off label use [Unknown]
  - Blood pressure diastolic increased [Recovered/Resolved]
  - Renal disorder [Recovered/Resolved]
  - Off label use [Recovered/Resolved]
